FAERS Safety Report 14406247 (Version 2)
Quarter: 2018Q1

REPORT INFORMATION
  Report Type: Spontaneous
  Country: GB (occurrence: GB)
  Receive Date: 20180118
  Receipt Date: 20180122
  Transmission Date: 20180509
  Serious: Yes (Other)
  Sender: FDA-Public Use
  Company Number: GB-JNJFOC-20180117728

PATIENT
  Sex: Female
  Weight: 56 kg

DRUGS (1)
  1. XARELTO [Suspect]
     Active Substance: RIVAROXABAN
     Indication: PRODUCT USED FOR UNKNOWN INDICATION
     Route: 048

REACTIONS (20)
  - Asthenia [Not Recovered/Not Resolved]
  - Fear [Unknown]
  - Fatigue [Unknown]
  - Palpitations [Unknown]
  - Headache [Not Recovered/Not Resolved]
  - Abdominal discomfort [Unknown]
  - Otorrhoea [Unknown]
  - Nausea [Not Recovered/Not Resolved]
  - Pruritus generalised [Unknown]
  - Deafness [Unknown]
  - Decreased appetite [Unknown]
  - Malaise [Unknown]
  - Ear haemorrhage [Unknown]
  - Abdominal pain [Not Recovered/Not Resolved]
  - Limb discomfort [Unknown]
  - Gait disturbance [Unknown]
  - Hypotension [Unknown]
  - Nightmare [Unknown]
  - Pain [Unknown]
  - Drug dose omission [Unknown]
